FAERS Safety Report 8532535-4 (Version None)
Quarter: 2012Q3

REPORT INFORMATION
  Report Type: 
  Country: None (occurrence: None)
  Receive Date: 20120724
  Receipt Date: 20120718
  Transmission Date: 20120928
  Serious: No
  Sender: FDA-Public Use
  Company Number: US-PFIZER INC-2012177645

PATIENT
  Sex: Male
  Weight: 88 kg

DRUGS (3)
  1. XYZAL [Concomitant]
     Indication: HYPERSENSITIVITY
     Dosage: UNK, AS NEEDED
  2. CELEBREX [Suspect]
     Indication: BACK PAIN
     Dosage: 200 MG, DAILY
     Dates: start: 20110901, end: 20110101
  3. HYDROCODONE [Concomitant]
     Indication: PAIN
     Dosage: 500 MG, AS NEEDED

REACTIONS (2)
  - GASTRIC DISORDER [None]
  - DRUG INEFFECTIVE [None]
